FAERS Safety Report 25398987 (Version 1)
Quarter: 2025Q2

REPORT INFORMATION
  Report Type: Spontaneous
  Country: JP (occurrence: JP)
  Receive Date: 20250605
  Receipt Date: 20250605
  Transmission Date: 20250717
  Serious: Yes (Hospitalization)
  Sender: ALEXION PHARMACEUTICALS
  Company Number: JP-SAKK-2025SA155046AA

PATIENT

DRUGS (1)
  1. BEYFORTUS [Suspect]
     Active Substance: NIRSEVIMAB-ALIP
     Indication: Product used for unknown indication

REACTIONS (4)
  - Rhinorrhoea [Unknown]
  - Cough [Unknown]
  - Otitis media [Unknown]
  - Respiratory syncytial virus infection [Recovered/Resolved]
